FAERS Safety Report 7833343-X (Version None)
Quarter: 2011Q4

REPORT INFORMATION
  Report Type: 
  Country: None (occurrence: None)
  Receive Date: 20111020
  Receipt Date: 20111011
  Transmission Date: 20120403
  Serious: Yes (Life-Threatening, Hospitalization)
  Sender: FDA-Public Use
  Company Number: 1000024709

PATIENT
  Age: 47 Year
  Sex: Female
  Weight: 66.8 kg

DRUGS (4)
  1. SAVELLA [Suspect]
     Indication: FIBROMYALGIA
     Dosage: 100 MG (100 MG, 1 IN 1 D), ORAL
     Route: 048
     Dates: start: 20091020, end: 20110330
  2. SAVELLA [Suspect]
     Indication: FIBROMYALGIA
     Dosage: ORAL
     Route: 048
     Dates: start: 20091001, end: 20091019
  3. SAVELLA [Suspect]
     Indication: FIBROMYALGIA
     Dosage: 75 MG (75 MG, 1 IN 1 D), ORAL
     Route: 048
     Dates: start: 20110101, end: 20110101
  4. ADDERALL XR 10 [Suspect]
     Indication: ATTENTION DEFICIT/HYPERACTIVITY DISORDER
     Dosage: 50 MG (50 MG, 1 IN 1 D), ORAL
     Route: 048
     Dates: start: 20100502, end: 20110425

REACTIONS (15)
  - MUSCLE TWITCHING [None]
  - MUSCLE SPASMS [None]
  - PAIN [None]
  - MUSCLE TIGHTNESS [None]
  - HEART RATE INCREASED [None]
  - GASTRIC DISORDER [None]
  - TREMOR [None]
  - FIBROMYALGIA [None]
  - CONDITION AGGRAVATED [None]
  - CRYING [None]
  - HALLUCINATION [None]
  - DRUG INEFFECTIVE [None]
  - HEADACHE [None]
  - NAUSEA [None]
  - DRUG WITHDRAWAL SYNDROME [None]
